FAERS Safety Report 25057953 (Version 1)
Quarter: 2025Q1

REPORT INFORMATION
  Report Type: Spontaneous
  Country: DE (occurrence: DE)
  Receive Date: 20250310
  Receipt Date: 20250310
  Transmission Date: 20250409
  Serious: Yes (Other)
  Sender: UCB
  Company Number: DE-UCBSA-2025013063

PATIENT
  Age: 55 Year
  Sex: Male

DRUGS (2)
  1. CIMZIA [Interacting]
     Active Substance: CERTOLIZUMAB PEGOL
     Indication: Product used for unknown indication
  2. HYDROXYUREA [Suspect]
     Active Substance: HYDROXYUREA
     Indication: Polycythaemia vera
     Dates: start: 2024

REACTIONS (5)
  - Polycythaemia vera [Unknown]
  - Rheumatoid arthritis [Unknown]
  - Dizziness [Unknown]
  - Nausea [Unknown]
  - Drug interaction [Unknown]

NARRATIVE: CASE EVENT DATE: 20240101
